FAERS Safety Report 16764569 (Version 1)
Quarter: 2019Q3

REPORT INFORMATION
  Report Type: Report from Study
  Country: CA (occurrence: CA)
  Receive Date: 20190902
  Receipt Date: 20190902
  Transmission Date: 20191005
  Serious: Yes (Other)
  Sender: FDA-Public Use
  Company Number: CA-009507513-1908CAN010261

PATIENT

DRUGS (1)
  1. KEYTRUDA [Suspect]
     Active Substance: PEMBROLIZUMAB
     Indication: LUNG SQUAMOUS CELL CARCINOMA STAGE IV

REACTIONS (6)
  - Pulmonary fibrosis [Unknown]
  - Oesophageal carcinoma [Unknown]
  - Arthritis [Unknown]
  - Adverse event [Unknown]
  - Malignant neoplasm progression [Unknown]
  - Spondylitis [Unknown]
